FAERS Safety Report 18480113 (Version 10)
Quarter: 2022Q1

REPORT INFORMATION
  Report Type: Report from Study
  Country: CO (occurrence: CO)
  Receive Date: 20201109
  Receipt Date: 20220111
  Transmission Date: 20220424
  Serious: Yes (Life-Threatening, Hospitalization, Other)
  Sender: FDA-Public Use
  Company Number: NVSC2020CO299440

PATIENT
  Age: 56 Year
  Sex: Male
  Weight: 82 kg

DRUGS (16)
  1. XOLAIR [Suspect]
     Active Substance: OMALIZUMAB
     Indication: Asthma
     Dosage: 600 MG, BIW
     Route: 058
     Dates: start: 20190906
  2. XOLAIR [Suspect]
     Active Substance: OMALIZUMAB
     Dosage: 600 MG, QMO
     Route: 058
     Dates: start: 20190906
  3. XOLAIR [Suspect]
     Active Substance: OMALIZUMAB
     Dosage: 600 MG, QMO
     Route: 058
  4. XOLAIR [Suspect]
     Active Substance: OMALIZUMAB
     Dosage: 300 MG, QMO
     Route: 058
  5. XOLAIR [Suspect]
     Active Substance: OMALIZUMAB
     Dosage: 600 MG, QMO
     Route: 058
  6. XOLAIR [Suspect]
     Active Substance: OMALIZUMAB
     Dosage: 1200 MG, QMO
     Route: 065
  7. AMOXICILLIN [Suspect]
     Active Substance: AMOXICILLIN
     Indication: Product used for unknown indication
     Dosage: 500 MG
     Route: 065
  8. MONTELUKAST [Suspect]
     Active Substance: MONTELUKAST SODIUM
     Indication: Asthma
     Dosage: 10 MG, QD
     Route: 048
     Dates: start: 20180826
  9. ATORVASTATIN [Suspect]
     Active Substance: ATORVASTATIN
     Indication: Blood cholesterol increased
     Dosage: 40 MG
     Route: 065
  10. ALBUTEROL [Concomitant]
     Active Substance: ALBUTEROL
     Indication: Product used for unknown indication
     Dosage: 4 DF, Q4H
     Route: 065
  11. BUDESONIDE [Concomitant]
     Active Substance: BUDESONIDE
     Indication: Asthma
     Dosage: 2 INHALATIONS PER QD
     Route: 065
     Dates: start: 20180826
  12. TIOTROPIUM [Concomitant]
     Active Substance: TIOTROPIUM
     Indication: Asthma
     Dosage: 2 DF, QD
     Route: 065
     Dates: start: 20180826
  13. LEVOTHYROXINE [Concomitant]
     Active Substance: LEVOTHYROXINE
     Indication: Hypothyroidism
     Dosage: ORAL100 MG, QD
     Route: 048
  14. BISACODYL [Concomitant]
     Active Substance: BISACODYL
     Indication: Metabolic disorder
     Dosage: 5 MG, QD
     Route: 065
  15. CLOZAPINE [Concomitant]
     Active Substance: CLOZAPINE
     Indication: Schizophrenia
     Dosage: 25 MG, QD
     Route: 065
  16. VALPROIC ACID [Concomitant]
     Active Substance: VALPROIC ACID
     Indication: Schizophrenia
     Dosage: 250 MG
     Route: 065

REACTIONS (31)
  - Feeling abnormal [Unknown]
  - Pneumonia [Recovering/Resolving]
  - Dyspnoea [Unknown]
  - Tracheal obstruction [Recovering/Resolving]
  - Asthmatic crisis [Unknown]
  - Asthma [Unknown]
  - Illness [Unknown]
  - Pneumonia fungal [Unknown]
  - Diabetes mellitus [Unknown]
  - Choking [Unknown]
  - Nasal neoplasm [Unknown]
  - Syncope [Recovering/Resolving]
  - Oxygen saturation decreased [Recovering/Resolving]
  - Tachycardia [Recovering/Resolving]
  - Heart rate increased [Recovering/Resolving]
  - Wheezing [Unknown]
  - Abnormal behaviour [Unknown]
  - Sensitivity to weather change [Unknown]
  - Heart rate decreased [Unknown]
  - Malaise [Unknown]
  - Pharyngitis [Unknown]
  - Laryngitis [Unknown]
  - Nasal discomfort [Unknown]
  - Nasal polyps [Unknown]
  - Drug hypersensitivity [Unknown]
  - Hypersensitivity [Unknown]
  - Cough [Unknown]
  - Sinusitis [Unknown]
  - Nasal congestion [Unknown]
  - Drug ineffective [Unknown]
  - Inappropriate schedule of product administration [Unknown]

NARRATIVE: CASE EVENT DATE: 20200801
